FAERS Safety Report 13188798 (Version 3)
Quarter: 2017Q1

REPORT INFORMATION
  Report Type: Spontaneous
  Country: NL (occurrence: NL)
  Receive Date: 20170206
  Receipt Date: 20170210
  Transmission Date: 20170428
  Serious: Yes (Disabling)
  Sender: FDA-Public Use
  Company Number: NL-009507513-1701NLD013788

PATIENT
  Age: 77 Year
  Sex: Male
  Weight: 100 kg

DRUGS (10)
  1. METOPROLOL SUCCINATE. [Concomitant]
     Active Substance: METOPROLOL SUCCINATE
     Dosage: 1 TIME A DAY
     Route: 048
  2. TAVONIN [Concomitant]
     Dosage: 3 TIMES A DAY
     Route: 048
  3. VESICARE [Concomitant]
     Active Substance: SOLIFENACIN SUCCINATE
     Dosage: 1 TIME A DAY
     Route: 048
  4. HYDROCHLOROTHIAZIDE (+) TRIAMTERENE [Concomitant]
     Active Substance: HYDROCHLOROTHIAZIDE\TRIAMTERENE
     Dosage: 1 TIME A DAY
     Route: 048
  5. ZOCOR [Suspect]
     Active Substance: SIMVASTATIN
     Indication: PERCUTANEOUS CORONARY INTERVENTION
     Dosage: 1 TIME A DAY 1 UNIT(S)
     Route: 048
     Dates: start: 2002, end: 20170118
  6. IRBESARTAN. [Concomitant]
     Active Substance: IRBESARTAN
     Dosage: 1 DF, QD
     Route: 048
  7. CALCICHEW [Concomitant]
     Active Substance: CALCIUM CARBONATE
     Dosage: 1 TIME A DAY
     Route: 048
  8. DURATEARS (DEXTRAN 70 (+) HYPROMELLOSE) [Concomitant]
     Dosage: 4 TIMES A DAY 1 IN AFFECTED EYE
     Route: 047
  9. GANFORT [Concomitant]
     Active Substance: BIMATOPROST\TIMOLOL
     Dosage: 1 TIME A DAY 1 BOTH EYES
     Route: 047
  10. ACENOCOUMAROL [Concomitant]
     Active Substance: ACENOCOUMAROL
     Dosage: AS PRESCRIBED
     Route: 048

REACTIONS (2)
  - Tendon rupture [Not Recovered/Not Resolved]
  - Myalgia [Unknown]

NARRATIVE: CASE EVENT DATE: 201609
